FAERS Safety Report 8806515 (Version 1)
Quarter: 2012Q4

REPORT INFORMATION
  Report Type: 
  Country: GB (occurrence: GB)
  Receive Date: 20120925
  Receipt Date: 20120925
  Transmission Date: 20130627
  Serious: Yes (Other)
  Sender: FDA-Public Use
  Company Number: GB-RANBAXY-2012R1-60016

PATIENT
  Age: 83 Year
  Sex: Female

DRUGS (15)
  1. AMOXICILLIN AND CLAVULANATE POTASSIUM [Suspect]
     Indication: URINARY TRACT INFECTION
     Dosage: 1.2 g, tid
     Route: 040
     Dates: start: 20120818, end: 20120819
  2. AMOXICILLIN\CLAVULANATE POTASSIUM [Suspect]
     Indication: URINARY TRACT INFECTION
     Dosage: 625 mg, tid
     Route: 048
     Dates: start: 20120820, end: 20120821
  3. OMEPRAZOLE [Suspect]
     Indication: PRODUCT USED FOR UNKNOWN INDICATION
     Dosage: 20 mg, qd
     Route: 048
     Dates: end: 20120821
  4. PHENYTOIN [Suspect]
     Indication: GRAND MAL CONVULSION
     Dosage: 750 mg, 1/1 total
     Route: 041
     Dates: start: 20120818, end: 20120818
  5. EPILIM [Suspect]
     Indication: GRAND MAL CONVULSION
     Dosage: 200 mg, bid
     Route: 048
     Dates: start: 20120819, end: 20120821
  6. GENTICIN [Suspect]
     Indication: URINARY TRACT INFECTION
     Dosage: 240 mg, 1/1 Total
     Route: 041
     Dates: start: 20120818, end: 20120818
  7. BUTRANS [Concomitant]
     Indication: PRODUCT USED FOR UNKNOWN INDICATION
     Dosage: 10 ?g, q1h
     Route: 062
     Dates: start: 20120819
  8. BUTRANS [Concomitant]
     Dosage: 20 ?g, q1h
     Route: 062
     Dates: end: 20120819
  9. CALCEOS [Concomitant]
     Indication: PRODUCT USED FOR UNKNOWN INDICATION
     Dosage: 1 DF, bid
     Route: 065
  10. EBIXA [Concomitant]
     Indication: VASCULAR DEMENTIA
     Dosage: 20 mg, qd
     Route: 048
  11. MOVICOL [Concomitant]
     Indication: PRODUCT USED FOR UNKNOWN INDICATION
     Dosage: 13 g, qd
     Route: 065
     Dates: end: 20120818
  12. PARACETAMOL [Concomitant]
     Indication: PRODUCT USED FOR UNKNOWN INDICATION
     Dosage: 1 g, qid
     Route: 048
  13. PROTELOS [Concomitant]
     Indication: PRODUCT USED FOR UNKNOWN INDICATION
     Dosage: 2 g, qid
     Route: 048
     Dates: end: 20120818
  14. SENNA [Concomitant]
     Indication: PRODUCT USED FOR UNKNOWN INDICATION
     Dosage: 7.5 mg, qd
     Route: 065
     Dates: end: 20120818
  15. TRIMETHOPRIM [Concomitant]
     Indication: URINARY TRACT INFECTION
     Dosage: 200 mg, bid
     Route: 048
     Dates: end: 20120823

REACTIONS (1)
  - Blood creatine phosphokinase increased [Recovering/Resolving]
